FAERS Safety Report 17117342 (Version 1)
Quarter: 2019Q4

REPORT INFORMATION
  Report Type: Spontaneous
  Country: CN (occurrence: CN)
  Receive Date: 20191205
  Receipt Date: 20191205
  Transmission Date: 20200122
  Serious: Yes (Hospitalization)
  Sender: FDA-Public Use
  Company Number: CN-EISAI MEDICAL RESEARCH-EC-2019-066361

PATIENT
  Age: 96 Year
  Sex: Male
  Weight: 59 kg

DRUGS (3)
  1. OXIRACETAM [Suspect]
     Active Substance: OXIRACETAM
     Indication: DEMENTIA
     Route: 048
     Dates: start: 20190613, end: 20190806
  2. PRAVASTATIN. [Suspect]
     Active Substance: PRAVASTATIN
     Indication: ARTERIOSCLEROSIS
     Route: 048
     Dates: start: 20190628, end: 20190806
  3. DONEPEZIL. [Suspect]
     Active Substance: DONEPEZIL
     Indication: DEMENTIA
     Route: 048
     Dates: start: 20190729, end: 20190806

REACTIONS (1)
  - Hepatic enzyme increased [Recovering/Resolving]

NARRATIVE: CASE EVENT DATE: 20190806
